FAERS Safety Report 6490438-3 (Version None)
Quarter: 2009Q4

REPORT INFORMATION
  Report Type: 
  Country: None (occurrence: None)
  Receive Date: 20091210
  Receipt Date: 20091210
  Transmission Date: 20100525
  Serious: Yes (Other)
  Sender: FDA-Public Use
  Company Number: None

PATIENT
  Age: 58 Year
  Sex: Female
  Weight: 63.05 kg

DRUGS (1)
  1. NITROFURANTOIN [Suspect]
     Indication: URINARY TRACT INFECTION
     Dosage: ONE 12 HOURS PO
     Route: 048
     Dates: start: 20091204, end: 20091208

REACTIONS (11)
  - COUGH [None]
  - DYSURIA [None]
  - EYE PRURITUS [None]
  - FEELING ABNORMAL [None]
  - NERVOUSNESS [None]
  - ORAL PAIN [None]
  - PERSONALITY CHANGE [None]
  - PRURITUS [None]
  - RASH [None]
  - RASH GENERALISED [None]
  - WHEEZING [None]
